FAERS Safety Report 6571447-2 (Version None)
Quarter: 2010Q1

REPORT INFORMATION
  Report Type: 
  Country: None (occurrence: None)
  Receive Date: 20100205
  Receipt Date: 20100202
  Transmission Date: 20100710
  Serious: Yes (Other)
  Sender: FDA-Public Use
  Company Number: US-TEVA-211363USA

PATIENT
  Sex: Female
  Weight: 90.8 kg

DRUGS (13)
  1. CLARAVIS [Suspect]
     Indication: ACNE
     Route: 048
     Dates: start: 20090519, end: 20090930
  2. HORMONAL RING [Concomitant]
     Indication: CONTRACEPTION
     Route: 067
  3. XIPAMIDE [Concomitant]
     Route: 061
     Dates: start: 20090514
  4. SODIUM CHLORIDE [Concomitant]
     Route: 045
     Dates: start: 20090615
  5. OCEAN GEL [Concomitant]
     Route: 061
     Dates: start: 20090615
  6. EYE GTTS [Concomitant]
     Indication: DRY EYE
  7. ADAPALENE [Concomitant]
     Route: 061
     Dates: start: 20090514
  8. TRETINOIN [Concomitant]
     Route: 061
     Dates: start: 20090415
  9. MINOCYCLINE HYDROCHLORIDE [Concomitant]
     Route: 048
     Dates: start: 20090414
  10. BENZACLIN TOPICAL [Concomitant]
     Route: 061
     Dates: start: 20090414
  11. SPF #30 [Concomitant]
     Route: 061
     Dates: start: 20090615
  12. BACTRIBAN [Concomitant]
     Indication: STAPHYLOCOCCAL INFECTION
     Dates: start: 20090831
  13. METHOTREXATE [Concomitant]
     Indication: ABORTION INDUCED
     Route: 048
     Dates: start: 20091007, end: 20090101

REACTIONS (2)
  - ABORTION MISSED [None]
  - UNINTENDED PREGNANCY [None]
